FAERS Safety Report 15802052 (Version 1)
Quarter: 2019Q1

REPORT INFORMATION
  Report Type: Spontaneous
  Country: US (occurrence: US)
  Receive Date: 20190104
  Receipt Date: 20190104
  Transmission Date: 20190417
  Serious: No
  Sender: FDA-Public Use
  Company Number: None

PATIENT

DRUGS (1)
  1. ATROPINE OPTHALMIC DROPS [Suspect]
     Active Substance: ATROPINE

REACTIONS (8)
  - Product prescribing error [None]
  - Fall [None]
  - Delirium [None]
  - Psychotic disorder [None]
  - Hallucination [None]
  - Transcription medication error [None]
  - Product dispensing error [None]
  - Skin laceration [None]
